FAERS Safety Report 9075847 (Version 1)
Quarter: 2013Q1

REPORT INFORMATION
  Report Type: Report from Study
  Country: US (occurrence: US)
  Receive Date: 20130129
  Receipt Date: 20130129
  Transmission Date: 20140127
  Serious: No
  Sender: FDA-Public Use
  Company Number: US-ABBOTT-12P-163-0941481-00

PATIENT
  Age: 20 Year
  Sex: Male

DRUGS (4)
  1. HUMIRA 40 MG/0.8 ML PEN [Suspect]
     Indication: CROHN^S DISEASE
     Dosage: 1 DOSE
     Dates: start: 20120503, end: 20120503
  2. HUMIRA 40 MG/0.8 ML PEN [Suspect]
     Dosage: 1 DOSE
     Dates: start: 20120517, end: 20120517
  3. HUMIRA 40 MG/0.8 ML PEN [Suspect]
     Dates: start: 20120531
  4. XANAX [Concomitant]
     Indication: PANIC ATTACK

REACTIONS (6)
  - Fatigue [Recovered/Resolved]
  - Asthenia [Recovered/Resolved]
  - Visual impairment [Recovered/Resolved]
  - Dyspnoea [Recovered/Resolved]
  - Presyncope [Recovered/Resolved]
  - Dyspnoea [Recovered/Resolved]
